FAERS Safety Report 8330338-7 (Version None)
Quarter: 2012Q2

REPORT INFORMATION
  Report Type: 
  Country: None (occurrence: None)
  Receive Date: 20120502
  Receipt Date: 20120426
  Transmission Date: 20120825
  Serious: Yes (Hospitalization)
  Sender: FDA-Public Use
  Company Number: US-ACTELION-A-NJ2011-55736

PATIENT

DRUGS (6)
  1. LASIX [Concomitant]
  2. REVATIO [Concomitant]
  3. COUMADIN [Concomitant]
  4. VENTAVIS [Suspect]
     Indication: PULMONARY ARTERIAL HYPERTENSION
     Dosage: 6 X DAILY
     Route: 055
     Dates: start: 20110804, end: 20120422
  5. TRACLEER [Suspect]
     Indication: PULMONARY ARTERIAL HYPERTENSION
     Dosage: UNK
     Route: 048
     Dates: start: 20100510, end: 20120422
  6. INSULIN [Concomitant]
     Dosage: UNK
     Dates: end: 20120422

REACTIONS (5)
  - SHOCK HYPOGLYCAEMIC [None]
  - LOSS OF CONSCIOUSNESS [None]
  - CONFUSIONAL STATE [None]
  - BLOOD GLUCOSE DECREASED [None]
  - VISUAL IMPAIRMENT [None]
